FAERS Safety Report 18542809 (Version 1)
Quarter: 2020Q4

REPORT INFORMATION
  Report Type: Report from Study
  Country: US (occurrence: US)
  Receive Date: 20201124
  Receipt Date: 20201124
  Transmission Date: 20210114
  Serious: Yes (Other)
  Sender: FDA-Public Use
  Company Number: US-JNJFOC-20201136857

PATIENT
  Age: 24 Year
  Sex: Female

DRUGS (7)
  1. SPRAVATO [Suspect]
     Active Substance: ESKETAMINE
     Indication: DEPRESSION
     Dosage: TOTAL 7 DOSES
     Dates: start: 20201019
  2. SPRAVATO [Suspect]
     Active Substance: ESKETAMINE
     Dates: start: 20201105
  3. SPRAVATO [Suspect]
     Active Substance: ESKETAMINE
     Dates: start: 20201111
  4. SPRAVATO [Suspect]
     Active Substance: ESKETAMINE
     Dates: start: 20201029
  5. SPRAVATO [Suspect]
     Active Substance: ESKETAMINE
     Dates: start: 20201026
  6. SPRAVATO [Suspect]
     Active Substance: ESKETAMINE
     Dates: start: 20201023
  7. SPRAVATO [Suspect]
     Active Substance: ESKETAMINE
     Dates: start: 20201102

REACTIONS (2)
  - Dissociation [Recovered/Resolved]
  - Panic attack [Recovered/Resolved]

NARRATIVE: CASE EVENT DATE: 20201111
